FAERS Safety Report 7603372-X (Version None)
Quarter: 2011Q3

REPORT INFORMATION
  Report Type: 
  Country: None (occurrence: None)
  Receive Date: 20110712
  Receipt Date: 20110707
  Transmission Date: 20111222
  Serious: Yes (Life-Threatening)
  Sender: FDA-Public Use
  Company Number: PHHY2011US60894

PATIENT
  Age: 28 Year
  Sex: Female
  Weight: 38 kg

DRUGS (2)
  1. SERETIDE [Concomitant]
     Indication: ASTHMA
     Dosage: 250 TO 50 MCG AS NEEDED
     Dates: start: 20090301
  2. EXTAVIA [Suspect]
     Indication: MULTIPLE SCLEROSIS
     Dosage: 0.3 MG, QOD
     Route: 058
     Dates: start: 20081214, end: 20110601

REACTIONS (3)
  - SUICIDAL IDEATION [None]
  - DRUG INEFFECTIVE [None]
  - ANXIETY [None]
